FAERS Safety Report 12322118 (Version 2)
Quarter: 2016Q2

REPORT INFORMATION
  Report Type: Report from Study
  Country: US (occurrence: US)
  Receive Date: 20160502
  Receipt Date: 20160512
  Transmission Date: 20160815
  Serious: Yes (Hospitalization, Other)
  Sender: FDA-Public Use
  Company Number: US-BAYER-2016-059488

PATIENT
  Age: 35 Year
  Sex: Male
  Weight: 126.98 kg

DRUGS (3)
  1. ADEMPAS [Suspect]
     Active Substance: RIOCIGUAT
     Indication: PULMONARY HYPERTENSION
     Dosage: UNK
     Route: 048
     Dates: start: 20160302
  2. ADEMPAS [Suspect]
     Active Substance: RIOCIGUAT
     Indication: PULMONARY HYPERTENSION
     Dosage: 1.5 MG, TID
     Route: 048
  3. ADEMPAS [Suspect]
     Active Substance: RIOCIGUAT
     Indication: PULMONARY HYPERTENSION
     Dosage: 1 MG, TID
     Route: 048

REACTIONS (8)
  - Dizziness [Unknown]
  - Fluid overload [None]
  - Hypoxia [None]
  - Blood pressure decreased [Unknown]
  - Dyspepsia [Unknown]
  - Pneumonia [Unknown]
  - Gait disturbance [Unknown]
  - Tooth abscess [Recovering/Resolving]
